FAERS Safety Report 4468224-5 (Version None)
Quarter: 2004Q4

REPORT INFORMATION
  Report Type: 
  Country: None (occurrence: None)
  Receive Date: 20041007
  Receipt Date: 20041004
  Transmission Date: 20050328
  Serious: Yes (Disabling, Other)
  Sender: FDA-Public Use
  Company Number: BR-MERCK-0410BRA00173

PATIENT
  Age: 71 Year
  Sex: Female

DRUGS (6)
  1. ASPIRINA [Concomitant]
     Route: 065
  2. ATORVASTATIN CALCIUM [Concomitant]
     Route: 065
  3. HIGROTON [Concomitant]
     Indication: HYPERTENSION
     Route: 065
  4. DIAMICRON [Concomitant]
     Indication: DIABETES MELLITUS
     Route: 065
  5. VIOXX [Suspect]
     Indication: EPICONDYLITIS
     Route: 048
     Dates: start: 20040901, end: 20040930
  6. VIOXX [Suspect]
     Indication: EAR PAIN
     Route: 048
     Dates: start: 20040901, end: 20040930

REACTIONS (1)
  - CEREBROVASCULAR ACCIDENT [None]
